FAERS Safety Report 8235064-0 (Version None)
Quarter: 2012Q1

REPORT INFORMATION
  Report Type: 
  Country: None (occurrence: None)
  Receive Date: 20120326
  Receipt Date: 20120314
  Transmission Date: 20120608
  Serious: Yes (Other)
  Sender: FDA-Public Use
  Company Number: FR-GLAXOSMITHKLINE-B0789537A

PATIENT
  Age: 41 Year
  Sex: Female

DRUGS (1)
  1. LAPATINIB [Suspect]
     Indication: BREAST CANCER
     Route: 048

REACTIONS (5)
  - FATIGUE [None]
  - DIARRHOEA [None]
  - ACNE [None]
  - GAIT DISTURBANCE [None]
  - ACTINOMYCOSIS [None]
